FAERS Safety Report 25509387 (Version 1)
Quarter: 2025Q3

REPORT INFORMATION
  Report Type: Spontaneous
  Country: US (occurrence: None)
  Receive Date: 20250702
  Receipt Date: 20250702
  Transmission Date: 20251021
  Serious: Yes (Death)
  Sender: FDA-CTU
  Company Number: None

PATIENT
  Age: 44 Year
  Sex: Female

DRUGS (6)
  1. TADALAFIL [Suspect]
     Active Substance: TADALAFIL
     Indication: Pulmonary arterial hypertension
     Dosage: 20MG QD ORAL?
     Route: 048
     Dates: start: 20190122, end: 20250403
  2. AZATHIOPRINE [Concomitant]
     Active Substance: AZATHIOPRINE
  3. CARVEDILOL [Concomitant]
     Active Substance: CARVEDILOL
  4. LANSOPRAZOLE [Concomitant]
     Active Substance: LANSOPRAZOLE
  5. REFRESH TEARS [Concomitant]
     Active Substance: CARBOXYMETHYLCELLULOSE SODIUM
  6. GENTEAL TEARS (MILD) [Concomitant]
     Active Substance: DEXTRAN 70\HYPROMELLOSE 2910 (4000 MPA.S)

REACTIONS (7)
  - Dyspnoea [None]
  - Acute kidney injury [None]
  - Hypervolaemia [None]
  - Hyponatraemia [None]
  - Hepatic hydrothorax [None]
  - Acute kidney injury [None]
  - Haemofiltration [None]

NARRATIVE: CASE EVENT DATE: 20250218
